FAERS Safety Report 5329422-1 (Version None)
Quarter: 2007Q2

REPORT INFORMATION
  Report Type: 
  Country: None (occurrence: None)
  Receive Date: 20070220
  Receipt Date: 20061009
  Transmission Date: 20071010
  Serious: Yes (Hospitalization)
  Sender: FDA-Public Use
  Company Number: 3364

PATIENT
  Age: 62 Year
  Sex: Female

DRUGS (2)
  1. AZATHIOPRINE [Suspect]
     Indication: DERMATITIS
     Dosage: 10 YEARS OF USE
  2. SYSTEMIC CORTICOSTEROIDS [Concomitant]

REACTIONS (1)
  - CRYPTOCOCCAL CUTANEOUS INFECTION [None]
